FAERS Safety Report 6717968-0 (Version None)
Quarter: 2010Q2

REPORT INFORMATION
  Report Type: 
  Country: None (occurrence: None)
  Receive Date: 20100510
  Receipt Date: 20100504
  Transmission Date: 20101027
  Serious: Yes (Other)
  Sender: FDA-Public Use
  Company Number: PHHY2010MX28703

PATIENT
  Age: 77 Year
  Sex: Male

DRUGS (1)
  1. TEGRETOL [Suspect]
     Indication: EPILEPSY
     Dosage: 3 TABLETS OF 200 MG DAILY
     Route: 048
     Dates: start: 19900101

REACTIONS (2)
  - ACCIDENT [None]
  - HIP FRACTURE [None]
